FAERS Safety Report 20966157 (Version 2)
Quarter: 2022Q2

REPORT INFORMATION
  Report Type: Spontaneous
  Country: PL (occurrence: PL)
  Receive Date: 20220616
  Receipt Date: 20220617
  Transmission Date: 20220721
  Serious: No
  Sender: FDA-Public Use
  Company Number: PL-BAYER-2022P005108

PATIENT

DRUGS (1)
  1. EYLEA [Suspect]
     Active Substance: AFLIBERCEPT
     Indication: Retinal telangiectasia
     Dosage: UNK, STRENGTH: 40 MG/ML, SOLUTION FOR INJECTION
     Route: 031

REACTIONS (1)
  - Off label use [Unknown]
